FAERS Safety Report 8377313-4 (Version None)
Quarter: 2012Q2

REPORT INFORMATION
  Report Type: 
  Country: None (occurrence: None)
  Receive Date: 20120522
  Receipt Date: 20120507
  Transmission Date: 20120825
  Serious: Yes (Hospitalization)
  Sender: FDA-Public Use
  Company Number: TR-WATSON-2012-08147

PATIENT
  Age: 26 Year
  Sex: Female

DRUGS (2)
  1. HYDROXYZINE PAMOATE [Suspect]
     Indication: SUICIDE ATTEMPT
     Dosage: 60X 2 MG, SINGLE
     Route: 048
  2. AMITRIPTYLINE HCL [Suspect]
     Indication: SUICIDE ATTEMPT
     Dosage: 200X25 MG, SINGLE
     Route: 048

REACTIONS (6)
  - OVERDOSE [None]
  - GRAND MAL CONVULSION [None]
  - CARDIO-RESPIRATORY ARREST [None]
  - VENTRICULAR FIBRILLATION [None]
  - LOSS OF CONSCIOUSNESS [None]
  - HEART RATE ABNORMAL [None]
